FAERS Safety Report 16595683 (Version 1)
Quarter: 2019Q3

REPORT INFORMATION
  Report Type: Spontaneous
  Country: US (occurrence: US)
  Receive Date: 20190719
  Receipt Date: 20190719
  Transmission Date: 20191004
  Serious: No
  Sender: FDA-Public Use
  Company Number: US-JNJFOC-20190717371

PATIENT
  Age: 6 Decade
  Sex: Female
  Weight: 57.2 kg

DRUGS (1)
  1. MENS ROGAINE EXTRA STRENGTH [Suspect]
     Active Substance: MINOXIDIL
     Indication: ALOPECIA
     Dosage: 1 ML DROPPER TWICE A DAY
     Route: 061
     Dates: start: 20181031

REACTIONS (3)
  - Alopecia [Unknown]
  - Product use issue [Unknown]
  - Off label use [Unknown]
